FAERS Safety Report 26137200 (Version 2)
Quarter: 2025Q4

REPORT INFORMATION
  Report Type: Spontaneous
  Country: EG (occurrence: EG)
  Receive Date: 20251209
  Receipt Date: 20251222
  Transmission Date: 20260117
  Serious: Yes (Hospitalization, Other)
  Sender: NOVO NORDISK
  Company Number: EG-NOVOPROD-1577790

PATIENT
  Age: 639 Month
  Sex: Male

DRUGS (5)
  1. INSULIN HUMAN [Suspect]
     Active Substance: INSULIN HUMAN
     Indication: Diabetes mellitus
     Dosage: 100 IU, QD (60 WITH BREAKFAST AND 40U DINNER)
     Route: 058
     Dates: start: 2009, end: 2011
  2. INSULIN HUMAN [Suspect]
     Active Substance: INSULIN HUMAN
     Dosage: 100 IU, QD (60 WITH BREAKFAST AND 40U DINNER)
     Route: 058
     Dates: start: 2011
  3. INSULIN HUMAN [Suspect]
     Active Substance: INSULIN HUMAN
     Dosage: 80 IU, QD (50U WITH BREAKFAST AND 30U DINNER)
     Route: 058
     Dates: start: 2011
  4. BISOPROLOL FUMARATE [Concomitant]
     Active Substance: BISOPROLOL FUMARATE
     Indication: Hypertension
     Dosage: UNK (HALF TABLET DAILY)
     Route: 048
  5. ASPIRIN [Concomitant]
     Active Substance: ASPIRIN
     Indication: Coagulopathy
     Dosage: 1 TAB/DAY WITH LUNCH
     Route: 048
     Dates: start: 2009

REACTIONS (3)
  - Retinal infiltrates [Unknown]
  - Coronary artery insufficiency [Not Recovered/Not Resolved]
  - Hypoglycaemia [Recovered/Resolved]

NARRATIVE: CASE EVENT DATE: 20240101
